FAERS Safety Report 16877502 (Version 6)
Quarter: 2020Q2

REPORT INFORMATION
  Report Type: Spontaneous
  Country: US (occurrence: US)
  Receive Date: 20191002
  Receipt Date: 20200429
  Transmission Date: 20200713
  Serious: No
  Sender: FDA-Public Use
  Company Number: US-PFIZER INC-2019421741

PATIENT
  Age: 77 Year
  Sex: Female

DRUGS (2)
  1. IBRANCE [Suspect]
     Active Substance: PALBOCICLIB
     Indication: BREAST CANCER FEMALE
     Dosage: 100 MG, UNK
  2. IBRANCE [Suspect]
     Active Substance: PALBOCICLIB
     Dosage: 75 MG, UNK
     Dates: start: 20190405

REACTIONS (15)
  - Amnesia [Unknown]
  - Loss of personal independence in daily activities [Unknown]
  - Cognitive disorder [Unknown]
  - Abdominal discomfort [Unknown]
  - Dry skin [Unknown]
  - Confusional state [Unknown]
  - Arthritis [Unknown]
  - Gait disturbance [Unknown]
  - Pain [Unknown]
  - Fatigue [Not Recovered/Not Resolved]
  - Asthenia [Unknown]
  - Limb discomfort [Unknown]
  - Sitting disability [Unknown]
  - Neoplasm progression [Unknown]
  - Decreased appetite [Unknown]
